FAERS Safety Report 6227630-9 (Version None)
Quarter: 2009Q2

REPORT INFORMATION
  Report Type: 
  Country: None (occurrence: None)
  Receive Date: 20090612
  Receipt Date: 20090610
  Transmission Date: 20091009
  Serious: Yes (Hospitalization)
  Sender: FDA-Public Use
  Company Number: DE-BIOGENIDEC-2009BI015973

PATIENT
  Age: 38 Year
  Sex: Female

DRUGS (2)
  1. AVONEX [Suspect]
     Indication: RELAPSING-REMITTING MULTIPLE SCLEROSIS
     Route: 030
     Dates: start: 20060801, end: 20080201
  2. VALPROATE SODIUM [Concomitant]
     Indication: EPILEPSY
     Dates: start: 19970101

REACTIONS (3)
  - COGNITIVE DISORDER [None]
  - DRUG RESISTANCE [None]
  - STATUS EPILEPTICUS [None]
